FAERS Safety Report 6357032-6 (Version None)
Quarter: 2009Q3

REPORT INFORMATION
  Report Type: 
  Country: None (occurrence: None)
  Receive Date: 20090915
  Receipt Date: 20081230
  Transmission Date: 20100115
  Serious: No
  Sender: FDA-Public Use
  Company Number: US-ABBOTT-09P-163-0495618-00

PATIENT
  Sex: Male
  Weight: 13.166 kg

DRUGS (8)
  1. DEPAKOTE [Suspect]
     Indication: EPILEPSY
     Route: 048
     Dates: start: 20081211, end: 20081219
  2. DEPAKOTE [Suspect]
     Route: 048
     Dates: start: 20081220, end: 20081227
  3. DEPAKOTE [Suspect]
     Dosage: 250 MG IN MORNING,125 MG MID-DAY, AND 250 MG AT NIGHT
     Route: 048
     Dates: start: 20081228, end: 20081230
  4. DEPAKOTE [Suspect]
     Dosage: 250 MG IN AM, 250 MG MID-DAY, 125 MG AT NIGHT
     Route: 048
     Dates: start: 20081231
  5. FENOBARBITAL [Concomitant]
     Indication: EPILEPSY
     Route: 048
  6. FENOBARBITAL [Concomitant]
     Route: 048
  7. TRILEPTAL [Concomitant]
     Indication: EPILEPSY
     Route: 048
  8. ZONEGRAN [Concomitant]
     Indication: EPILEPSY
     Route: 048

REACTIONS (3)
  - DIARRHOEA [None]
  - INSOMNIA [None]
  - PSYCHOMOTOR HYPERACTIVITY [None]
